FAERS Safety Report 8013086-2 (Version None)
Quarter: 2011Q4

REPORT INFORMATION
  Report Type: 
  Country: None (occurrence: None)
  Receive Date: 20111229
  Receipt Date: 20111227
  Transmission Date: 20120403
  Serious: Yes (Hospitalization, Other)
  Sender: FDA-Public Use
  Company Number: JP-B.I. PHARMACEUTICALS,INC./RIDGEFIELD-2011-BP-27528NB

PATIENT
  Sex: Female

DRUGS (6)
  1. MICARDIS [Suspect]
     Dosage: 40 MG
     Route: 048
  2. PLAVIX [Concomitant]
     Dosage: 75 MG
     Route: 065
     Dates: start: 20061012
  3. PLAVIX [Concomitant]
     Route: 048
  4. MICARDIS [Suspect]
     Indication: HYPERTENSION
     Dosage: 40 MG
     Route: 048
     Dates: start: 20060101, end: 20111130
  5. CONIEL [Concomitant]
     Dosage: 4 MG
     Route: 048
     Dates: start: 20060101
  6. CONIEL [Concomitant]
     Route: 048

REACTIONS (1)
  - LOSS OF CONSCIOUSNESS [None]
